FAERS Safety Report 5393782-6 (Version None)
Quarter: 2007Q3

REPORT INFORMATION
  Report Type: 
  Country: None (occurrence: None)
  Receive Date: 20070723
  Receipt Date: 20070716
  Transmission Date: 20080115
  Serious: Yes (Hospitalization)
  Sender: FDA-Public Use
  Company Number: US-AMGEN-US234251

PATIENT
  Sex: Male

DRUGS (3)
  1. NEULASTA [Suspect]
     Indication: CHEMOTHERAPY
     Route: 065
     Dates: start: 20070101
  2. PREDNISONE [Concomitant]
     Route: 065
  3. VITAMIN CAP [Concomitant]
     Route: 065

REACTIONS (9)
  - BONE PAIN [None]
  - DECREASED APPETITE [None]
  - DIPLEGIA [None]
  - DIZZINESS [None]
  - FALL [None]
  - FATIGUE [None]
  - HAEMATOCHEZIA [None]
  - LETHARGY [None]
  - SPEECH DISORDER [None]
